FAERS Safety Report 7406785-4 (Version None)
Quarter: 2011Q2

REPORT INFORMATION
  Report Type: 
  Country: None (occurrence: None)
  Receive Date: 20110411
  Receipt Date: 20110407
  Transmission Date: 20111010
  Serious: Yes (Hospitalization, Other)
  Sender: FDA-Public Use
  Company Number: GXKR2011DE01421

PATIENT
  Sex: Female

DRUGS (13)
  1. LORAZEPAM [Suspect]
     Dosage: 0.5 MG, UNK
     Route: 048
     Dates: start: 20100902, end: 20100908
  2. LORAZEPAM [Suspect]
     Dosage: 1 MG, UNK
     Route: 048
     Dates: start: 20100819, end: 20100901
  3. ZYPREXA [Suspect]
     Dosage: 10 MG, QD
     Route: 048
     Dates: start: 20100713, end: 20100817
  4. RAMIPRIL [Suspect]
     Dosage: 2.5 MG, QD
     Route: 048
  5. SEROQUEL [Suspect]
     Dosage: 50 MG/DAY, ADDITIONAL INTAKE OF NOT RETARDED FORM
     Route: 048
     Dates: start: 20100825, end: 20100831
  6. SULFAMETHOXAZOLE W/TRIMETHOPRIM [Concomitant]
     Dosage: UNK MEQ/KG, UNK
     Route: 048
     Dates: start: 20100816, end: 20100820
  7. PROMETHAZINE [Suspect]
     Dosage: 50 MG, QD
     Route: 048
     Dates: start: 20100622, end: 20100818
  8. DOXEPIN [Suspect]
     Dosage: 50 MG, QD
     Route: 048
     Dates: start: 20100813, end: 20100818
  9. ACETYLSALICYLIC ACID SRT [Concomitant]
     Dosage: 100 MG, QD
     Route: 048
  10. HYDROCHLOROTHIAZIDE [Suspect]
     Dosage: 12.5 MG, QD
     Route: 048
  11. SEROQUEL [Suspect]
     Dosage: 100 MG, UNK
     Route: 048
     Dates: start: 20100818, end: 20100818
  12. MIRTAZAPINE [Suspect]
     Dosage: 30 MG, QD
     Route: 048
     Dates: start: 20100621
  13. SEROQUEL [Suspect]
     Dosage: 150 MG, UNK
     Dates: start: 20100819

REACTIONS (3)
  - HYPOTENSION [None]
  - CIRCULATORY COLLAPSE [None]
  - FALL [None]
